FAERS Safety Report 21375918 (Version 1)
Quarter: 2022Q3

REPORT INFORMATION
  Report Type: Spontaneous
  Country: DE (occurrence: DE)
  Receive Date: 20220926
  Receipt Date: 20220926
  Transmission Date: 20221027
  Serious: Yes (Hospitalization, Other)
  Sender: FDA-Public Use
  Company Number: None

PATIENT
  Age: 69 Year
  Sex: Male

DRUGS (9)
  1. OLANZAPINE [Suspect]
     Active Substance: OLANZAPINE
     Indication: Product used for unknown indication
     Dosage: 10 MG, 0.5-0-2-0
  2. RISPERIDONE [Suspect]
     Active Substance: RISPERIDONE
     Indication: Product used for unknown indication
     Dosage: 1 MG, 0-0-1-0
     Route: 065
  3. TORSEMIDE [Suspect]
     Active Substance: TORSEMIDE
     Indication: Product used for unknown indication
     Dosage: 10 MG, 1-0-0-0
     Route: 065
  4. VALPROATE SODIUM [Suspect]
     Active Substance: VALPROATE SODIUM
     Indication: Product used for unknown indication
     Dosage: 300 MG, 1-0-0-0,
     Route: 065
  5. BIPERIDEN [Concomitant]
     Active Substance: BIPERIDEN
     Indication: Product used for unknown indication
     Dosage: 4 MG, 1-0-0-0
     Route: 065
  6. CHOLECALCIFEROL [Concomitant]
     Active Substance: CHOLECALCIFEROL
     Indication: Product used for unknown indication
     Dosage: 1000 IE / TAG, 1-0-0-0
     Route: 065
  7. LORAZEPAM [Concomitant]
     Active Substance: LORAZEPAM
     Indication: Product used for unknown indication
     Dosage: 1 MG, 1-0-1-0
     Route: 065
  8. Macrogol/Kaliumchlorid/Natriumcarbonat/Natriumchlorid [Concomitant]
     Indication: Product used for unknown indication
     Dosage: 1-1-0-0
     Route: 065
  9. METHIONINE [Concomitant]
     Active Substance: METHIONINE
     Indication: Product used for unknown indication
     Dosage: 500 MG, 1-0-1-0
     Route: 065

REACTIONS (10)
  - Diarrhoea [Unknown]
  - General physical health deterioration [Unknown]
  - Aphasia [Unknown]
  - Depressed level of consciousness [Unknown]
  - Vomiting [Unknown]
  - Hyponatraemia [Unknown]
  - Gaze palsy [Unknown]
  - Anaemia [Unknown]
  - Electrolyte imbalance [Unknown]
  - Condition aggravated [Unknown]
